FAERS Safety Report 12831377 (Version 1)
Quarter: 2016Q4

REPORT INFORMATION
  Report Type: Spontaneous
  Country: US (occurrence: US)
  Receive Date: 20161008
  Receipt Date: 20161008
  Transmission Date: 20170207
  Serious: Yes (Other)
  Sender: FDA-Public Use
  Company Number: US-ABBVIE-16P-163-1748849-00

PATIENT
  Sex: Female

DRUGS (2)
  1. LUPRON [Suspect]
     Active Substance: LEUPROLIDE ACETATE
     Indication: ENDOMETRIOSIS
     Route: 050
  2. LUPRON [Suspect]
     Active Substance: LEUPROLIDE ACETATE
     Route: 050
     Dates: start: 2016

REACTIONS (3)
  - Diarrhoea [Unknown]
  - Pain [Unknown]
  - Hysterectomy [Unknown]

NARRATIVE: CASE EVENT DATE: 2007
